FAERS Safety Report 10069994 (Version 3)
Quarter: 2014Q2

REPORT INFORMATION
  Report Type: Report from Study
  Country: JP (occurrence: JP)
  Receive Date: 20140410
  Receipt Date: 20140606
  Transmission Date: 20141212
  Serious: Yes (Hospitalization)
  Sender: FDA-Public Use
  Company Number: JP-ROCHE-1376303

PATIENT
  Age: 59 Year
  Sex: Female
  Weight: 41.2 kg

DRUGS (7)
  1. TRASTUZUMAB EMTANSINE [Suspect]
     Indication: BREAST CANCER METASTATIC
     Route: 042
     Dates: start: 20140210
  2. TRASTUZUMAB EMTANSINE [Suspect]
     Indication: BREAST CANCER METASTATIC
     Route: 042
     Dates: start: 20140303, end: 20140324
  3. CYCLOPHOSPHAMIDE [Suspect]
     Indication: BREAST CANCER
     Route: 065
     Dates: start: 200508
  4. CYCLOPHOSPHAMIDE [Suspect]
     Route: 065
     Dates: start: 201207, end: 201211
  5. NEXIUM [Concomitant]
     Indication: DECREASED APPETITE
     Route: 048
     Dates: start: 20140217
  6. PRIMPERAN [Concomitant]
     Indication: DECREASED APPETITE
     Dosage: SINGLE USE
     Route: 048
     Dates: start: 20140217, end: 20140319
  7. LOXONIN [Concomitant]
     Indication: HEADACHE
     Dosage: SINGLE USE
     Route: 048
     Dates: start: 20140214, end: 20140305

REACTIONS (1)
  - Cystitis haemorrhagic [Recovering/Resolving]
